FAERS Safety Report 16856701 (Version 2)
Quarter: 2019Q3

REPORT INFORMATION
  Report Type: Spontaneous
  Country: BR (occurrence: BR)
  Receive Date: 20190926
  Receipt Date: 20190930
  Transmission Date: 20191005
  Serious: Yes (Hospitalization, Other)
  Sender: FDA-Public Use
  Company Number: BR-CELGENEUS-BRA-20190906894

PATIENT
  Age: 69 Year
  Sex: Female

DRUGS (3)
  1. VIDAZA [Suspect]
     Active Substance: AZACITIDINE
     Indication: MYELODYSPLASTIC SYNDROME
     Dosage: 130 MILLIGRAM
     Route: 058
     Dates: start: 20190729
  2. VIDAZA [Suspect]
     Active Substance: AZACITIDINE
     Indication: OFF LABEL USE
     Dosage: 130 MILLIGRAM
     Route: 058
     Dates: start: 20190826
  3. BACTRIM [Concomitant]
     Active Substance: SULFAMETHOXAZOLE\TRIMETHOPRIM
     Indication: INFECTION PROPHYLAXIS
     Dosage: 800 MILLIGRAM
     Route: 065
     Dates: start: 20190803

REACTIONS (17)
  - Application site erythema [Recovered/Resolved]
  - Plateletcrit decreased [Unknown]
  - Memory impairment [Recovering/Resolving]
  - Intestinal haemorrhage [Unknown]
  - Gait disturbance [Recovering/Resolving]
  - Application site hypersensitivity [Recovered/Resolved]
  - Red blood cell count abnormal [Unknown]
  - Urinary tract infection [Recovered/Resolved]
  - Fatigue [Recovering/Resolving]
  - Application site pain [Recovered/Resolved]
  - Dyspnoea [Recovering/Resolving]
  - Asthenia [Unknown]
  - Haemoglobin increased [Unknown]
  - Depression [Recovering/Resolving]
  - Speech disorder [Recovering/Resolving]
  - Asthenia [Recovered/Resolved]
  - White blood cell count decreased [Unknown]

NARRATIVE: CASE EVENT DATE: 201907
